FAERS Safety Report 10146128 (Version 1)
Quarter: 2014Q2

REPORT INFORMATION
  Report Type: Spontaneous
  Country: US (occurrence: US)
  Receive Date: 20140501
  Receipt Date: 20140501
  Transmission Date: 20141212
  Serious: No
  Sender: FDA-Public Use
  Company Number: US-009507513-1404USA011621

PATIENT
  Sex: Female
  Weight: 39.91 kg

DRUGS (4)
  1. TRUSOPT [Suspect]
     Indication: GLAUCOMA
     Dosage: UNK
     Route: 047
  2. AZOPT [Suspect]
     Indication: GLAUCOMA
     Dosage: UNK
  3. ALPHAGAN P [Suspect]
     Indication: GLAUCOMA
     Dosage: UNK
  4. BETAXOLOL HYDROCHLORIDE [Suspect]
     Indication: GLAUCOMA
     Dosage: UNK

REACTIONS (6)
  - Skin depigmentation [Unknown]
  - Ear pain [Unknown]
  - Hypersensitivity [Unknown]
  - Drug ineffective [Unknown]
  - Headache [Unknown]
  - Pruritus [Unknown]
